FAERS Safety Report 8272265-X (Version None)
Quarter: 2012Q2

REPORT INFORMATION
  Report Type: 
  Country: None (occurrence: None)
  Receive Date: 20120410
  Receipt Date: 20120130
  Transmission Date: 20120825
  Serious: No
  Sender: FDA-Public Use
  Company Number: US-TEVA-2011005758

PATIENT
  Sex: Female
  Weight: 81.72 kg

DRUGS (14)
  1. MULTI-VITAMIN [Concomitant]
  2. POTASSIUM [Concomitant]
  3. ENALAPRIL MALEATE [Concomitant]
  4. NUVIGIL [Suspect]
     Indication: SLEEP APNOEA SYNDROME
     Route: 048
     Dates: start: 20111026, end: 20111028
  5. ACETYLSALICYLIC ACID SRT [Concomitant]
  6. CALCIUM CARBONATE [Concomitant]
  7. INSULIN GLARGINE [Concomitant]
  8. MELATONIN [Concomitant]
  9. DILTIAZEM HCL [Concomitant]
  10. FUROSEMIDE [Concomitant]
  11. LEVOTHYROXINE SODIUM [Concomitant]
  12. MILNACIPRAN [Concomitant]
  13. GABAPENTIN [Concomitant]
  14. HYDROXYZINE [Concomitant]

REACTIONS (4)
  - ANXIETY [None]
  - PSYCHOMOTOR HYPERACTIVITY [None]
  - MENTAL IMPAIRMENT [None]
  - MUSCULOSKELETAL CHEST PAIN [None]
